FAERS Safety Report 14769715 (Version 1)
Quarter: 2018Q2

REPORT INFORMATION
  Report Type: Spontaneous
  Country: US (occurrence: US)
  Receive Date: 20180417
  Receipt Date: 20180417
  Transmission Date: 20180711
  Serious: No
  Sender: FDA-Public Use
  Company Number: US-GLAXOSMITHKLINE-US2018061574

PATIENT
  Age: 57 Year
  Sex: Female

DRUGS (20)
  1. HYDROCODONE-ACETAMINOPHEN [Concomitant]
     Active Substance: ACETAMINOPHEN\HYDROCODONE
  2. ESCITALOPRAM [Concomitant]
     Active Substance: ESCITALOPRAM OXALATE
  3. ATORVASTATIN [Concomitant]
     Active Substance: ATORVASTATIN
  4. COLACE [Concomitant]
     Active Substance: DOCUSATE SODIUM
  5. NIFEDIPINE. [Concomitant]
     Active Substance: NIFEDIPINE
  6. PREDNISONE. [Concomitant]
     Active Substance: PREDNISONE
  7. LOSARTAN. [Concomitant]
     Active Substance: LOSARTAN
  8. PANTOPRAZOLE [Concomitant]
     Active Substance: PANTOPRAZOLE
  9. TEMAZEPAN [Concomitant]
  10. MYCOPHENOLATE [Interacting]
     Active Substance: MYCOPHENOLIC ACID
     Indication: PRODUCT USED FOR UNKNOWN INDICATION
     Dosage: UNK
     Dates: end: 2017
  11. FUROSEMIDE. [Concomitant]
     Active Substance: FUROSEMIDE
  12. FISH OIL [Concomitant]
     Active Substance: FISH OIL
  13. BENLYSTA [Suspect]
     Active Substance: BELIMUMAB
     Indication: SYSTEMIC LUPUS ERYTHEMATOSUS
     Dosage: UNK UNK, CYC
     Route: 041
     Dates: end: 201712
  14. BENLYSTA [Suspect]
     Active Substance: BELIMUMAB
     Indication: SYSTEMIC LUPUS ERYTHEMATOSUS
     Dosage: UNK UNK, WE
     Route: 042
     Dates: start: 201803
  15. GABAPENTIN. [Concomitant]
     Active Substance: GABAPENTIN
  16. LOW DOSE ASPIRIN [Concomitant]
     Active Substance: ASPIRIN
  17. CARBAMAZEPINE. [Concomitant]
     Active Substance: CARBAMAZEPINE
  18. SAVELLA [Concomitant]
     Active Substance: MILNACIPRAN HYDROCHLORIDE
  19. MORPHINE SULFATE EXTENDED RELEASE [Concomitant]
     Active Substance: MORPHINE SULFATE
  20. TIZANIDINE. [Concomitant]
     Active Substance: TIZANIDINE

REACTIONS (7)
  - Wrong technique in device usage process [Unknown]
  - Drug dose omission [Unknown]
  - Bacterial infection [Recovered/Resolved]
  - Drug administration error [Unknown]
  - Influenza [Recovered/Resolved]
  - Malaise [Unknown]
  - Drug interaction [Unknown]

NARRATIVE: CASE EVENT DATE: 2017
